FAERS Safety Report 24456362 (Version 2)
Quarter: 2024Q4

REPORT INFORMATION
  Report Type: Report from Study
  Country: US (occurrence: US)
  Receive Date: 20241017
  Receipt Date: 20241018
  Transmission Date: 20250114
  Serious: No
  Sender: ROCHE
  Company Number: US-ROCHE-3510945

PATIENT
  Sex: Female
  Weight: 64.86 kg

DRUGS (7)
  1. RITUXAN [Suspect]
     Active Substance: RITUXIMAB
     Indication: Rheumatoid arthritis
     Route: 041
     Dates: start: 2021, end: 2022
  2. RITUXAN [Suspect]
     Active Substance: RITUXIMAB
     Dosage: ON 18/JAN/2024 AND 12/FEB/2024, SHE RECEIVED LAST TWO INFUSIONS OF RITUXIMAB.
     Route: 041
     Dates: start: 202301
  3. PLAVIX [Suspect]
     Active Substance: CLOPIDOGREL BISULFATE
     Indication: Transient ischaemic attack
     Route: 048
     Dates: start: 2020
  4. ROSUVASTATIN [Concomitant]
     Active Substance: ROSUVASTATIN
     Indication: Transient ischaemic attack
     Route: 048
     Dates: start: 2014
  5. LISINOPRIL [Concomitant]
     Active Substance: LISINOPRIL
     Indication: Transient ischaemic attack
     Route: 048
     Dates: start: 2014
  6. PLAQUENIL [Concomitant]
     Active Substance: HYDROXYCHLOROQUINE SULFATE
     Dosage: TWICE A DAY, BUT IS ALLOWED TO TAKE BOTH ONCE IN THE MORNING
     Route: 048
     Dates: start: 1999
  7. FOLIC ACID [Concomitant]
     Active Substance: FOLIC ACID
     Indication: Arthritis
     Route: 048
     Dates: start: 1999

REACTIONS (2)
  - Epistaxis [Not Recovered/Not Resolved]
  - Pain [Recovered/Resolved]

NARRATIVE: CASE EVENT DATE: 20210101
